FAERS Safety Report 12242159 (Version 1)
Quarter: 2016Q2

REPORT INFORMATION
  Report Type: Spontaneous
  Country: JP (occurrence: JP)
  Receive Date: 20160406
  Receipt Date: 20160406
  Transmission Date: 20160815
  Serious: Yes (Other)
  Sender: FDA-Public Use
  Company Number: JP-PFIZER INC-2016177457

PATIENT
  Age: 41 Year
  Sex: Female

DRUGS (2)
  1. AZULFIDINE EN-TABS [Suspect]
     Active Substance: SULFASALAZINE
     Dosage: UNK
  2. ENBREL [Suspect]
     Active Substance: ETANERCEPT
     Indication: RHEUMATOID ARTHRITIS
     Dosage: UNK

REACTIONS (6)
  - Drug ineffective [Unknown]
  - Therapeutic response decreased [Not Recovered/Not Resolved]
  - Bone deformity [Unknown]
  - Pain [Unknown]
  - Rheumatoid arthritis [Unknown]
  - Condition aggravated [Unknown]
